FAERS Safety Report 10367651 (Version 1)
Quarter: 2014Q3

REPORT INFORMATION
  Report Type: Spontaneous
  Country: IT (occurrence: None)
  Receive Date: 20140805
  Receipt Date: 20140805
  Transmission Date: 20150326
  Serious: Yes (Hospitalization, Other)
  Sender: FDA-Public Use
  Company Number: 2014JUB00065

PATIENT
  Age: 35 Year
  Sex: Female

DRUGS (1)
  1. METHYLPREDNISOLONE [Suspect]
     Active Substance: METHYLPREDNISOLONE
     Indication: OPTIC NEURITIS
     Route: 042
     Dates: start: 200202, end: 200501

REACTIONS (3)
  - Hepatic cirrhosis [None]
  - Drug-induced liver injury [None]
  - Cholelithiasis [None]

NARRATIVE: CASE EVENT DATE: 200502
